FAERS Safety Report 15984803 (Version 1)
Quarter: 2019Q1

REPORT INFORMATION
  Report Type: Spontaneous
  Country: US (occurrence: US)
  Receive Date: 20190219
  Receipt Date: 20190219
  Transmission Date: 20190418
  Serious: Yes (Death)
  Sender: FDA-Public Use
  Company Number: None

PATIENT
  Sex: Male

DRUGS (19)
  1. FLUCONAZOLE 200 MG [Concomitant]
     Active Substance: FLUCONAZOLE
     Dates: start: 20190107
  2. VITAMIN D3 1000 UNITS [Concomitant]
     Dates: start: 20190107
  3. STOOL SOFTENER 100 MG [Concomitant]
     Dates: start: 20190107
  4. BENZONATATE 100 MG CAPSULE [Concomitant]
     Dates: start: 20190107
  5. FUROSEMIDE 40 MG [Concomitant]
     Active Substance: FUROSEMIDE
     Dates: start: 20190107
  6. IDHIFA [Suspect]
     Active Substance: ENASIDENIB MESYLATE
     Indication: ACUTE MYELOID LEUKAEMIA
     Route: 048
  7. PANTOPRAZOLE 40 MG [Concomitant]
     Active Substance: PANTOPRAZOLE SODIUM
     Dates: start: 20190107
  8. CLOPIDOGREL [Concomitant]
     Active Substance: CLOPIDOGREL BISULFATE
     Dates: start: 20190107
  9. CANDESARTAN 32 MG [Concomitant]
     Active Substance: CANDESARTAN
     Dates: start: 20190107
  10. LEVOFLOXACIN 500 MG [Concomitant]
     Active Substance: LEVOFLOXACIN
     Dates: start: 20190107
  11. OXYCODONE 5 MG [Concomitant]
     Dates: start: 20190107
  12. CARVEDILOL 25 MG [Concomitant]
     Active Substance: CARVEDILOL
     Dates: start: 20190107
  13. FLUTICASONE NASAL SPRAY 50 MCG [Concomitant]
     Dates: start: 20190107
  14. AMLODIPINE [Concomitant]
     Active Substance: AMLODIPINE BESYLATE
     Dates: start: 20190107
  15. TRAMADOL 50 MG [Concomitant]
     Active Substance: TRAMADOL
     Dates: start: 20190107
  16. PROCHLORPERAZINE 5 MG [Concomitant]
     Dates: start: 20190107
  17. ASPIRIN LOW 81 MG [Concomitant]
     Dates: start: 20190107
  18. ONDANSETRON. [Concomitant]
     Active Substance: ONDANSETRON
     Dates: start: 20190107
  19. BASAGLAR 100 UNITS [Concomitant]
     Dates: start: 20190107

REACTIONS (1)
  - Malignant neoplasm progression [None]
